FAERS Safety Report 6255624-6 (Version None)
Quarter: 2009Q3

REPORT INFORMATION
  Report Type: 
  Country: None (occurrence: None)
  Receive Date: 20090701
  Receipt Date: 20090615
  Transmission Date: 20100115
  Serious: No
  Sender: FDA-Public Use
  Company Number: 8047920

PATIENT
  Sex: Male

DRUGS (5)
  1. KEPPRA [Suspect]
     Indication: CONVULSION
     Dosage: 1000 MG 2/D ITC
     Dates: start: 20090525
  2. LACTULOSE [Concomitant]
  3. DEPAKOTE ER [Concomitant]
  4. PHENOBARBITAL TAB [Concomitant]
  5. NORVASC [Concomitant]

REACTIONS (1)
  - INCORRECT ROUTE OF DRUG ADMINISTRATION [None]
